FAERS Safety Report 5196493-5 (Version None)
Quarter: 2006Q4

REPORT INFORMATION
  Report Type: 
  Country: None (occurrence: None)
  Receive Date: 20061227
  Receipt Date: 20061214
  Transmission Date: 20070319
  Serious: Yes (Other)
  Sender: FDA-Public Use
  Company Number: 233906

PATIENT
  Age: 49 Year
  Sex: Female
  Weight: 64 kg

DRUGS (4)
  1. MABTHERA ( RITUXIMAB)CONC FOR SOLUTION FOR INFUSION [Suspect]
     Indication: IDIOPATHIC THROMBOCYTOPENIC PURPURA
     Dosage: 600 MG, 1/WEEK, INTRAVENOUS
     Route: 042
     Dates: start: 20061213, end: 20061213
  2. DEXAMETHASONE TAB [Suspect]
     Indication: IDIOPATHIC THROMBOCYTOPENIC PURPURA
     Dosage: 40 MG,QD
     Dates: start: 20060915, end: 20061210
  3. CHLORPHENIRAMINE MALEATE [Suspect]
     Dosage: DRUG USE FOR UNKNOWN INDICATION
  4. MABTHERA ( RITUXIMAB)CONC FOR SOLUTION FOR INFUSION [Suspect]

REACTIONS (3)
  - EPILEPSY [None]
  - MALAISE [None]
  - NAUSEA [None]
